FAERS Safety Report 8927144 (Version 4)
Quarter: 2013Q3

REPORT INFORMATION
  Report Type: Spontaneous
  Country: US (occurrence: US)
  Receive Date: 20121127
  Receipt Date: 20130717
  Transmission Date: 20140515
  Serious: Yes (Hospitalization, Other)
  Sender: FDA-Public Use
  Company Number: US-009507513-1211USA010219

PATIENT
  Sex: Female
  Weight: 136.5 kg

DRUGS (2)
  1. NUVARING [Suspect]
     Indication: CONTRACEPTION
     Dosage: UNK
     Route: 067
     Dates: start: 2010, end: 201206
  2. INSULIN [Concomitant]
     Dosage: UNK
     Dates: start: 2010

REACTIONS (17)
  - Intracardiac thrombus [Unknown]
  - Coronary arterial stent insertion [Unknown]
  - Blood cholesterol increased [Unknown]
  - Migraine [Unknown]
  - Acute myocardial infarction [Unknown]
  - Coronary arterial stent insertion [Unknown]
  - Ventricular tachycardia [Recovered/Resolved]
  - Thrombectomy [Unknown]
  - Device occlusion [Unknown]
  - Varicose vein [Unknown]
  - Accelerated hypertension [Unknown]
  - Treatment noncompliance [Unknown]
  - Non-cardiac chest pain [Unknown]
  - Coronary artery disease [Unknown]
  - Gastrooesophageal reflux disease [Unknown]
  - Diabetic neuropathy [Unknown]
  - Dyslipidaemia [Unknown]
